FAERS Safety Report 18291165 (Version 2)
Quarter: 2020Q3

REPORT INFORMATION
  Report Type: Spontaneous
  Country: US (occurrence: US)
  Receive Date: 20200922
  Receipt Date: 20200924
  Transmission Date: 20201103
  Serious: No
  Sender: FDA-Public Use
  Company Number: NVSC2020US255903

PATIENT
  Sex: Female

DRUGS (2)
  1. IBRANCE [Suspect]
     Active Substance: PALBOCICLIB
     Indication: BREAST CANCER
     Dosage: 125 MG, QD, DAILY 21 DAYS, OFF 7 DAYS
     Route: 048
     Dates: start: 20200718
  2. LETROZOLE. [Suspect]
     Active Substance: LETROZOLE
     Indication: PRODUCT USED FOR UNKNOWN INDICATION
     Dosage: UNK UNK, QD, TAKING AT 12:30 PM
     Route: 065

REACTIONS (10)
  - Vomiting [Unknown]
  - Fatigue [Unknown]
  - Blood alkaline phosphatase decreased [Unknown]
  - Red blood cell count decreased [Unknown]
  - Arthralgia [Recovering/Resolving]
  - Sleep disorder [Unknown]
  - Constipation [Unknown]
  - Mental fatigue [Unknown]
  - White blood cell count decreased [Unknown]
  - Neck pain [Recovering/Resolving]
